FAERS Safety Report 10106129 (Version 3)
Quarter: 2015Q3

REPORT INFORMATION
  Report Type: Other
  Country: US (occurrence: US)
  Receive Date: 20140424
  Receipt Date: 20150825
  Transmission Date: 20151125
  Serious: Yes (Hospitalization, Other)
  Sender: FDA-Public Use
  Company Number: US-GSKPPD-2014GSK000933

PATIENT
  Age: 45 Year
  Sex: Male
  Weight: 114.41 kg

DRUGS (13)
  1. PLAVIX [Concomitant]
     Active Substance: CLOPIDOGREL BISULFATE
  2. LISINOPRIL. [Concomitant]
     Active Substance: LISINOPRIL
  3. TOPROL XL [Concomitant]
     Active Substance: METOPROLOL SUCCINATE
     Route: 048
  4. ASPIRIN. [Concomitant]
     Active Substance: ASPIRIN
     Route: 048
  5. AVANDIA [Suspect]
     Active Substance: ROSIGLITAZONE MALEATE
     Indication: DIABETES MELLITUS
     Route: 048
     Dates: start: 20060218
  6. INSPRA [Concomitant]
     Active Substance: EPLERENONE
     Route: 048
  7. NITROQUICK [Concomitant]
     Active Substance: NITROGLYCERIN
     Route: 060
  8. DIOVAN [Concomitant]
     Active Substance: VALSARTAN
     Route: 048
  9. CARVEDILOL. [Concomitant]
     Active Substance: CARVEDILOL
     Route: 048
  10. AVANDAMET [Suspect]
     Active Substance: METFORMIN HYDROCHLORIDE\ROSIGLITAZONE MALEATE
     Indication: DIABETES MELLITUS
     Dosage: UNIT DOSE: 8-2000MG
     Route: 048
     Dates: start: 20040807, end: 20060218
  11. IMDUR [Concomitant]
     Active Substance: ISOSORBIDE MONONITRATE
     Route: 048
  12. BUMEX [Concomitant]
     Active Substance: BUMETANIDE
     Route: 048
  13. ISOSORBIDE. [Concomitant]
     Active Substance: ISOSORBIDE
     Route: 048

REACTIONS (3)
  - Myocardial infarction [Unknown]
  - Stent placement [Recovered/Resolved]
  - Coronary artery bypass [Recovered/Resolved]

NARRATIVE: CASE EVENT DATE: 20060525
